FAERS Safety Report 17466851 (Version 1)
Quarter: 2020Q1

REPORT INFORMATION
  Report Type: Spontaneous
  Country: US (occurrence: US)
  Receive Date: 20200214
  Receipt Date: 20200214
  Transmission Date: 20200409
  Serious: Yes (Hospitalization)
  Sender: FDA-Public Use
  Company Number: None

PATIENT
  Age: 62 Year
  Sex: Female

DRUGS (8)
  1. FASLODEX [Concomitant]
     Active Substance: FULVESTRANT
  2. MULTIPLE VIT [Concomitant]
  3. AFINITOR [Suspect]
     Active Substance: EVEROLIMUS
     Indication: NEOPLASM MALIGNANT
     Route: 048
  4. CARVEDILOL. [Concomitant]
     Active Substance: CARVEDILOL
  5. GRANIX [Concomitant]
     Active Substance: TBO-FILGRASTIM
  6. FUROSEMIDE. [Concomitant]
     Active Substance: FUROSEMIDE
  7. POTASSIUM [Concomitant]
     Active Substance: POTASSIUM
  8. VITAMIN C [Concomitant]
     Active Substance: ASCORBIC ACID

REACTIONS (2)
  - Therapy cessation [None]
  - Cardiac failure congestive [None]

NARRATIVE: CASE EVENT DATE: 20200131
